FAERS Safety Report 18030079 (Version 1)
Quarter: 2020Q3

REPORT INFORMATION
  Report Type: Spontaneous
  Country: US (occurrence: US)
  Receive Date: 20200715
  Receipt Date: 20200715
  Transmission Date: 20201103
  Serious: No
  Sender: FDA-Public Use
  Company Number: None

PATIENT
  Sex: Female

DRUGS (5)
  1. ADVIL [Concomitant]
     Active Substance: IBUPROFEN
  2. COLESTIPOL [Concomitant]
     Active Substance: COLESTIPOL
  3. ACTEMRA ACTPEN [Suspect]
     Active Substance: TOCILIZUMAB
     Indication: RHEUMATOID ARTHRITIS
     Route: 058
     Dates: start: 20200505
  4. IBUPROFEN. [Concomitant]
     Active Substance: IBUPROFEN
  5. SERTRALINE [Concomitant]
     Active Substance: SERTRALINE HYDROCHLORIDE

REACTIONS (2)
  - Knee operation [None]
  - Product dose omission issue [None]
